FAERS Safety Report 7589101-7 (Version None)
Quarter: 2011Q3

REPORT INFORMATION
  Report Type: 
  Country: None (occurrence: None)
  Receive Date: 20110705
  Receipt Date: 20090331
  Transmission Date: 20111222
  Serious: Yes (Death, Other)
  Sender: FDA-Public Use
  Company Number: US-BAYER-200917099NA

PATIENT
  Age: 62 Year
  Sex: Female

DRUGS (14)
  1. OPTIMARK [Suspect]
     Indication: NUCLEAR MAGNETIC RESONANCE IMAGING
  2. GADOLINIUM IN UNSPECIFIED DRUG [Suspect]
  3. GADOLINIUM IN UNSPECIFIED DRUG [Suspect]
     Dosage: UNK
     Dates: start: 20051026, end: 20051026
  4. MULTIHANCE [Suspect]
     Indication: NUCLEAR MAGNETIC RESONANCE IMAGING
  5. GADOLINIUM IN UNSPECIFIED DRUG [Suspect]
     Dosage: UNK
     Dates: start: 20050906, end: 20050906
  6. EPOGEN [Concomitant]
  7. GADOLINIUM IN UNSPECIFIED DRUG [Suspect]
     Indication: IMAGING PROCEDURE
     Dosage: UNK
     Dates: start: 20031003, end: 20031003
  8. FERROUS SULFATE TAB [Concomitant]
  9. MAGNEVIST [Suspect]
     Indication: NUCLEAR MAGNETIC RESONANCE IMAGING
     Dosage: 20 ML, ONCE
     Route: 042
     Dates: start: 20060421, end: 20060421
  10. PROHANCE [Suspect]
     Indication: NUCLEAR MAGNETIC RESONANCE IMAGING
  11. RENAGEL [Concomitant]
     Dosage: 800 UNK, UNK
  12. INSULIN [Concomitant]
  13. OMNISCAN [Suspect]
     Indication: NUCLEAR MAGNETIC RESONANCE IMAGING
  14. COUMADIN [Concomitant]

REACTIONS (11)
  - INJURY [None]
  - WHEELCHAIR USER [None]
  - MOBILITY DECREASED [None]
  - ANXIETY [None]
  - JOINT STIFFNESS [None]
  - SKIN INDURATION [None]
  - SKIN TIGHTNESS [None]
  - NEPHROGENIC SYSTEMIC FIBROSIS [None]
  - PAIN [None]
  - JOINT CONTRACTURE [None]
  - SKIN HYPERTROPHY [None]
